FAERS Safety Report 9962964 (Version 1)
Quarter: 2014Q1

REPORT INFORMATION
  Report Type: Spontaneous
  Country: BR (occurrence: BR)
  Receive Date: 20140305
  Receipt Date: 20140305
  Transmission Date: 20141002
  Serious: Yes (Death)
  Sender: FDA-Public Use
  Company Number: BR-PFIZER INC-2014059937

PATIENT
  Age: 49 Year
  Sex: Female
  Weight: 50 kg

DRUGS (9)
  1. AROMASIN [Suspect]
     Indication: NEOPLASM MALIGNANT
     Dosage: 25 MG, DAILY
     Dates: start: 201309, end: 20130903
  2. ALDACTONE [Suspect]
     Indication: NEOPLASM MALIGNANT
     Dosage: 25 MG, UNK
     Dates: start: 201306, end: 20130903
  3. ALPRAZOLAM [Concomitant]
     Indication: SEDATIVE THERAPY
     Dosage: UNK
     Dates: start: 201308
  4. DEXAMETHASONE [Concomitant]
     Dosage: 4 MG, UNK
  5. FUROSEMIDE [Concomitant]
     Dosage: UNK
     Dates: start: 2013
  6. NAUSEDRON [Concomitant]
     Indication: NAUSEA
     Dosage: UNK
     Dates: start: 201307
  7. OMEPRAZOLE [Concomitant]
     Indication: GASTRIC DISORDER
     Dosage: UNK
     Dates: start: 2012
  8. ROXFLAN [Concomitant]
     Indication: HYPERTENSION
     Dosage: 5 MG, UNK
  9. PHENOBARBITAL [Concomitant]
     Dosage: 100 MG, UNK

REACTIONS (3)
  - Brain cancer metastatic [Fatal]
  - Gastrointestinal carcinoma [Fatal]
  - Lung neoplasm malignant [Fatal]
